FAERS Safety Report 5456402-8 (Version None)
Quarter: 2007Q3

REPORT INFORMATION
  Report Type: 
  Country: None (occurrence: None)
  Receive Date: 20070918
  Receipt Date: 20070912
  Transmission Date: 20080115
  Serious: Yes (Death, Other)
  Sender: FDA-Public Use
  Company Number: AU-ELI_LILLY_AND_COMPANY-AU200702003264

PATIENT
  Age: 83 Year
  Sex: Male

DRUGS (5)
  1. DILTIAZEM [Concomitant]
     Dosage: 60 MG, UNKNOWN
     Route: 065
  2. NEXIUM [Concomitant]
     Dosage: 20 MG, UNKNOWN
     Route: 065
  3. VITAMIN D [Concomitant]
     Dosage: UNK, UNKNOWN
     Route: 065
  4. RAMACE [Concomitant]
     Dosage: 2.5 MG, UNKNOWN
     Route: 065
  5. FORTEO [Suspect]
     Indication: OSTEOPOROSIS
     Dosage: 20 UG, DAILY (1/D)
     Route: 058
     Dates: start: 20060301

REACTIONS (3)
  - DEATH [None]
  - FALL [None]
  - MYOCARDIAL INFARCTION [None]
